FAERS Safety Report 18659248 (Version 1)
Quarter: 2020Q4

REPORT INFORMATION
  Report Type: Spontaneous
  Country: ME (occurrence: ME)
  Receive Date: 20201224
  Receipt Date: 20201224
  Transmission Date: 20210114
  Serious: Yes (Other)
  Sender: FDA-Public Use
  Company Number: NVSC2020ME331438

PATIENT
  Age: 40 Year
  Sex: Female

DRUGS (4)
  1. PAZOPANIB [Suspect]
     Active Substance: PAZOPANIB
     Dosage: 400 MG, BID
     Route: 065
     Dates: start: 201708
  2. PAZOPANIB [Suspect]
     Active Substance: PAZOPANIB
     Dosage: UNK
     Route: 065
     Dates: start: 201801
  3. PAZOPANIB [Suspect]
     Active Substance: PAZOPANIB
     Indication: SARCOMA
     Dosage: UNK
     Route: 065
     Dates: start: 2012
  4. TAXOL [Concomitant]
     Active Substance: PACLITAXEL
     Indication: PRODUCT USED FOR UNKNOWN INDICATION
     Route: 065

REACTIONS (9)
  - Haematotoxicity [Unknown]
  - Ear pain [Unknown]
  - Lymphadenopathy [Unknown]
  - Off label use [Unknown]
  - Neutropenia [Unknown]
  - Neoplasm [Unknown]
  - Jugular vein thrombosis [Unknown]
  - Disease progression [Unknown]
  - Hypoacusis [Unknown]

NARRATIVE: CASE EVENT DATE: 20160129
